FAERS Safety Report 8886498 (Version 2)
Quarter: 2012Q4

REPORT INFORMATION
  Report Type: 
  Country: US (occurrence: US)
  Receive Date: 20121105
  Receipt Date: 20121113
  Transmission Date: 20130627
  Serious: Yes (Other)
  Sender: FDA-Public Use
  Company Number: US-JNJFOC-20121100657

PATIENT
  Age: 78 Year
  Sex: Female
  Weight: 60.33 kg

DRUGS (3)
  1. BENADRYL [Suspect]
     Indication: URTICARIA
     Route: 048
  2. BENADRYL [Suspect]
     Indication: URTICARIA
     Route: 048
  3. BENADRYL [Suspect]
     Indication: URTICARIA
     Route: 048
     Dates: start: 20120830

REACTIONS (3)
  - Intraocular pressure increased [Unknown]
  - Somnolence [Unknown]
  - Off label use [Unknown]
